FAERS Safety Report 23077095 (Version 4)
Quarter: 2024Q1

REPORT INFORMATION
  Report Type: Spontaneous
  Country: US (occurrence: US)
  Receive Date: 20231018
  Receipt Date: 20240118
  Transmission Date: 20240410
  Serious: Yes (Other)
  Sender: FDA-Public Use
  Company Number: US-BRISTOL-MYERS SQUIBB COMPANY-2023-146832

PATIENT
  Age: 46 Year
  Sex: Female

DRUGS (2)
  1. SPRYCEL [Suspect]
     Active Substance: DASATINIB
     Indication: Chronic myeloid leukaemia
     Dosage: FREQUENCY: ONCE DAILY
     Route: 048
     Dates: start: 202309
  2. SPRYCEL [Suspect]
     Active Substance: DASATINIB
     Route: 048

REACTIONS (17)
  - Foreign body in throat [Unknown]
  - Oropharyngeal pain [Unknown]
  - Pharyngeal swelling [Unknown]
  - Wrong technique in product usage process [Unknown]
  - Implant site pain [Unknown]
  - Dysphagia [Unknown]
  - Palpitations [Recovering/Resolving]
  - Chest pain [Recovering/Resolving]
  - Hepatic enzyme increased [Unknown]
  - Cough [Unknown]
  - Chest discomfort [Unknown]
  - Fatigue [Unknown]
  - Dyspepsia [Unknown]
  - Flatulence [Unknown]
  - Abdominal distension [Unknown]
  - Brain fog [Unknown]
  - Pain [Unknown]
